FAERS Safety Report 9275723 (Version 1)
Quarter: 2013Q2

REPORT INFORMATION
  Report Type: Report from Study
  Country: SI (occurrence: SI)
  Receive Date: 20130507
  Receipt Date: 20130507
  Transmission Date: 20140414
  Serious: Yes (Hospitalization, Other)
  Sender: FDA-Public Use
  Company Number: SI-ROCHE-1147968

PATIENT
  Age: 64 Year
  Sex: Male
  Weight: 98 kg

DRUGS (3)
  1. AVASTIN [Suspect]
     Indication: COLON CANCER METASTATIC
     Route: 042
     Dates: start: 20091208, end: 20100805
  2. XELODA [Suspect]
     Indication: COLON CANCER METASTATIC
     Route: 048
     Dates: start: 20091208, end: 20100805
  3. CPT-11 [Concomitant]
     Indication: COLON CANCER METASTATIC
     Route: 042
     Dates: start: 20091208, end: 20100805

REACTIONS (2)
  - Urosepsis [Recovered/Resolved]
  - Nephrolithiasis [Unknown]
